FAERS Safety Report 15153207 (Version 1)
Quarter: 2018Q3

REPORT INFORMATION
  Report Type: Spontaneous
  Country: US (occurrence: US)
  Receive Date: 20180717
  Receipt Date: 20180717
  Transmission Date: 20181010
  Serious: Yes (Hospitalization, Other)
  Sender: FDA-Public Use
  Company Number: US-ASTRAZENECA-2018SE88495

PATIENT
  Age: 61 Year
  Sex: Female

DRUGS (3)
  1. QUETIAPINE. [Suspect]
     Active Substance: QUETIAPINE
     Route: 048
  2. DESIPRAMINE [Suspect]
     Active Substance: DESIPRAMINE
     Route: 065
  3. LITHIUM. [Suspect]
     Active Substance: LITHIUM
     Route: 065

REACTIONS (4)
  - Urinary retention [Recovered/Resolved]
  - Ileus [Recovered/Resolved]
  - Acute kidney injury [Recovered/Resolved]
  - Intestinal obstruction [Recovered/Resolved]
